FAERS Safety Report 7733682-7 (Version None)
Quarter: 2011Q3

REPORT INFORMATION
  Report Type: 
  Country: None (occurrence: None)
  Receive Date: 20110907
  Receipt Date: 20110831
  Transmission Date: 20111222
  Serious: Yes (Other)
  Sender: FDA-Public Use
  Company Number: JP-BRISTOL-MYERS SQUIBB COMPANY-15944143

PATIENT
  Age: 48 Year
  Sex: Male
  Weight: 68 kg

DRUGS (9)
  1. DECADRON [Concomitant]
     Indication: PREMEDICATION
     Route: 042
     Dates: start: 20110708
  2. CIMETIDINE INJ [Concomitant]
     Indication: PREMEDICATION
     Dosage: 1DF: 1A.
     Route: 042
     Dates: start: 20110708
  3. GRANISETRON [Concomitant]
     Indication: ANTIEMETIC SUPPORTIVE CARE
     Route: 042
     Dates: start: 20110708, end: 20110810
  4. ERBITUX [Suspect]
     Indication: RECTAL CANCER
     Dosage: 15JUL11-ONG 460MG  8JUL11-21JUL11:740MG INCLUDING SKIPPED WK.
     Route: 042
     Dates: start: 20110708
  5. OXALIPLATIN [Concomitant]
     Indication: RECTAL CANCER
     Dosage: OXALIPLATIN INTRAVENOUS INF
     Route: 042
  6. FLUOROURACIL [Concomitant]
     Indication: RECTAL CANCER
     Dosage: INTRAVENOUS INF ROUTE:INTRAVENOUS DRIP 4500MG.
     Route: 040
     Dates: start: 20110810
  7. POLARAMINE [Concomitant]
     Indication: PREMEDICATION
     Route: 042
  8. IRINOTECAN HCL [Concomitant]
     Indication: RECTAL CANCER
     Route: 042
     Dates: start: 20110810
  9. LEUCOVORIN CALCIUM [Concomitant]
     Indication: RECTAL CANCER
     Route: 042
     Dates: start: 20110810

REACTIONS (3)
  - NEUROPATHY PERIPHERAL [None]
  - ACNE [None]
  - HYPOMAGNESAEMIA [None]
